FAERS Safety Report 25112570 (Version 1)
Quarter: 2025Q1

REPORT INFORMATION
  Report Type: Report from Study
  Country: CN (occurrence: CN)
  Receive Date: 20250324
  Receipt Date: 20250324
  Transmission Date: 20250409
  Serious: No
  Sender: MERCK SHARP & DOHME LLC
  Company Number: CN-009507513-2267416

PATIENT
  Age: 83 Year
  Sex: Male
  Weight: 59 kg

DRUGS (1)
  1. LAGEVRIO [Suspect]
     Active Substance: MOLNUPIRAVIR
     Indication: COVID-19
     Dosage: 0.8G, Q12H
     Dates: start: 20241012, end: 20241018

REACTIONS (2)
  - Product prescribing issue [Unknown]
  - Incorrect product administration duration [Unknown]

NARRATIVE: CASE EVENT DATE: 20241017
